FAERS Safety Report 20322197 (Version 1)
Quarter: 2022Q1

REPORT INFORMATION
  Report Type: Spontaneous
  Country: JP (occurrence: JP)
  Receive Date: 20220111
  Receipt Date: 20220111
  Transmission Date: 20220423
  Serious: Yes (Hospitalization, Other)
  Sender: FDA-Public Use
  Company Number: JP-GSKNCCC-Case-01389955_AE-53477

PATIENT
  Age: 89 Year
  Sex: Male

DRUGS (3)
  1. ZOVIRAX [Suspect]
     Active Substance: ACYCLOVIR
     Dosage: UNK
  2. VELCADE [Concomitant]
     Active Substance: BORTEZOMIB
     Dosage: UNK, ONCE A MONTH
  3. FLUCONAZOLE [Concomitant]
     Active Substance: FLUCONAZOLE
     Dosage: UNK

REACTIONS (1)
  - Pneumonia [Unknown]
